FAERS Safety Report 17864591 (Version 2)
Quarter: 2020Q3

REPORT INFORMATION
  Report Type: Spontaneous
  Country: US (occurrence: US)
  Receive Date: 20200605
  Receipt Date: 20200930
  Transmission Date: 20201103
  Serious: Yes (Other)
  Sender: FDA-Public Use
  Company Number: US-ASTRAZENECA-2020SE71503

PATIENT
  Sex: Female
  Weight: 81.6 kg

DRUGS (2)
  1. BYDUREON [Suspect]
     Active Substance: EXENATIDE
     Indication: TYPE 2 DIABETES MELLITUS
     Route: 058
     Dates: start: 201804, end: 20191230
  2. BYDUREON [Suspect]
     Active Substance: EXENATIDE
     Indication: GLYCOSYLATED HAEMOGLOBIN INCREASED
     Route: 058
     Dates: start: 201804, end: 20191230

REACTIONS (27)
  - Fall [Unknown]
  - Deafness [Recovering/Resolving]
  - Otorrhoea [Unknown]
  - Injection site infection [Recovered/Resolved]
  - Glycosylated haemoglobin abnormal [Not Recovered/Not Resolved]
  - Abdominal discomfort [Recovered/Resolved]
  - Malaise [Unknown]
  - Blood glucose decreased [Unknown]
  - Ear pain [Unknown]
  - Pain [Not Recovered/Not Resolved]
  - Injection site mass [Recovered/Resolved]
  - Gastritis [Unknown]
  - Rib fracture [Unknown]
  - Vomiting [Recovered/Resolved]
  - Injection site pain [Unknown]
  - Blood glucose increased [Unknown]
  - Tympanic membrane disorder [Unknown]
  - Ear discomfort [Recovering/Resolving]
  - Feeling abnormal [Unknown]
  - Dizziness [Unknown]
  - Vertigo [Unknown]
  - Nausea [Recovered/Resolved]
  - Excessive cerumen production [Unknown]
  - Syncope [Unknown]
  - Injection site scar [Not Recovered/Not Resolved]
  - Product use complaint [Unknown]
  - Drug ineffective [Unknown]

NARRATIVE: CASE EVENT DATE: 201912
